FAERS Safety Report 21877402 (Version 1)
Quarter: 2023Q1

REPORT INFORMATION
  Report Type: Spontaneous
  Country: US (occurrence: None)
  Receive Date: 20230118
  Receipt Date: 20230118
  Transmission Date: 20230418
  Serious: Yes (Hospitalization)
  Sender: FDA-Public Use
  Company Number: US-ROCHE-3266568

PATIENT
  Age: 79 Year
  Sex: Female
  Weight: 31.780 kg

DRUGS (1)
  1. ESBRIET [Suspect]
     Active Substance: PIRFENIDONE
     Indication: Pulmonary fibrosis
     Dosage: TAKES 2 TABS WITH EACH MEAL
     Route: 048

REACTIONS (1)
  - Carbon dioxide increased [Recovering/Resolving]

NARRATIVE: CASE EVENT DATE: 20230106
